FAERS Safety Report 7783575-4 (Version None)
Quarter: 2011Q3

REPORT INFORMATION
  Report Type: 
  Country: None (occurrence: None)
  Receive Date: 20110928
  Receipt Date: 20110808
  Transmission Date: 20111222
  Serious: Yes (Death)
  Sender: FDA-Public Use
  Company Number: US-TYCO HEALTHCARE/MALLINCKRODT-T201101563

PATIENT
  Age: 23 Year
  Sex: Male

DRUGS (4)
  1. XANAX [Suspect]
     Dosage: UNK
  2. ANTIDEPRESSANTS [Suspect]
  3. HYDROMORPHONE HCL [Suspect]
     Dosage: UNK
  4. FENTANYL [Suspect]
     Indication: PAIN
     Route: 062

REACTIONS (2)
  - DRUG INTERACTION [None]
  - RESPIRATORY DEPRESSION [None]
